FAERS Safety Report 21733398 (Version 9)
Quarter: 2025Q1

REPORT INFORMATION
  Report Type: Report from Study
  Country: US (occurrence: US)
  Receive Date: 20221215
  Receipt Date: 20250317
  Transmission Date: 20250409
  Serious: Yes (Hospitalization, Other)
  Sender: TAKEDA
  Company Number: US-TAKEDA-2022TUS097072

PATIENT
  Sex: Male
  Weight: 84 kg

DRUGS (23)
  1. HUMAN IMMUNOGLOBULIN G [Suspect]
     Active Substance: HUMAN IMMUNOGLOBULIN G
     Indication: Immunodeficiency common variable
     Dosage: 30 GRAM, Q4WEEKS
     Dates: start: 20220721
  2. DIPHENHYDRAMINE [Concomitant]
     Active Substance: DIPHENHYDRAMINE
  3. SODIUM CHLORIDE [Concomitant]
     Active Substance: SODIUM CHLORIDE
  4. EPINEPHRINE [Concomitant]
     Active Substance: EPINEPHRINE
  5. SIMVASTATIN [Concomitant]
     Active Substance: SIMVASTATIN
  6. CARVEDILOL [Concomitant]
     Active Substance: CARVEDILOL
  7. TRELEGY ELLIPTA [Concomitant]
     Active Substance: FLUTICASONE FUROATE\UMECLIDINIUM BROMIDE\VILANTEROL TRIFENATATE
  8. ACETAMINOPHEN [Concomitant]
     Active Substance: ACETAMINOPHEN
  9. GABAPENTIN [Concomitant]
     Active Substance: GABAPENTIN
  10. NOVOLOG [Concomitant]
     Active Substance: INSULIN ASPART
  11. OXYGEN [Concomitant]
     Active Substance: OXYGEN
  12. HYDROCHLOROTHIAZIDE [Concomitant]
     Active Substance: HYDROCHLOROTHIAZIDE
  13. VENTOLIN [Concomitant]
     Active Substance: ALBUTEROL SULFATE
  14. FARXIGA [Concomitant]
     Active Substance: DAPAGLIFLOZIN PROPANEDIOL
  15. HEPARIN [Concomitant]
     Active Substance: HEPARIN SODIUM
  16. ASPIRIN [Concomitant]
     Active Substance: ASPIRIN
  17. INSPRA [Concomitant]
     Active Substance: EPLERENONE
  18. LIDOCAINE [Concomitant]
     Active Substance: LIDOCAINE
  19. LANTUS [Concomitant]
     Active Substance: INSULIN GLARGINE
  20. FUROSEMIDE [Concomitant]
     Active Substance: FUROSEMIDE
  21. DIPHENHYDRAMINE HYDROCHLORIDE [Concomitant]
     Active Substance: DIPHENHYDRAMINE HYDROCHLORIDE
  22. BUMETANIDE [Concomitant]
     Active Substance: BUMETANIDE
  23. TRAMADOL HCL [Concomitant]
     Active Substance: TRAMADOL HYDROCHLORIDE

REACTIONS (11)
  - Viral infection [Unknown]
  - Pneumonia [Unknown]
  - Dyspnoea [Unknown]
  - Urinary tract infection [Unknown]
  - Oxygen consumption increased [Unknown]
  - Rales [Unknown]
  - Insurance issue [Unknown]
  - Product dose omission issue [Unknown]
  - Weight decreased [Unknown]
  - Oedema peripheral [Unknown]
  - Oedema [Unknown]
